FAERS Safety Report 6922502-6 (Version None)
Quarter: 2010Q3

REPORT INFORMATION
  Report Type: 
  Country: None (occurrence: None)
  Receive Date: 20100813
  Receipt Date: 20100804
  Transmission Date: 20110219
  Serious: No
  Sender: FDA-Public Use
  Company Number: US-BAYER-201029875NA

PATIENT
  Age: 20 Year
  Sex: Male

DRUGS (1)
  1. MAGNEVIST [Suspect]
     Indication: NUCLEAR MAGNETIC RESONANCE IMAGING
     Dosage: AS USED: 18 ML
     Dates: start: 20100727, end: 20100727

REACTIONS (4)
  - EYE SWELLING [None]
  - NASAL CONGESTION [None]
  - RESPIRATORY DISTRESS [None]
  - SNEEZING [None]
